FAERS Safety Report 21435579 (Version 1)
Quarter: 2022Q4

REPORT INFORMATION
  Report Type: Spontaneous
  Country: GB (occurrence: GB)
  Receive Date: 20221010
  Receipt Date: 20221010
  Transmission Date: 20230112
  Serious: Yes (Other)
  Sender: FDA-Public Use
  Company Number: None

PATIENT

DRUGS (6)
  1. BUPROPION [Suspect]
     Active Substance: BUPROPION
     Indication: Product used for unknown indication
     Dosage: 1 DF, QD
     Route: 065
     Dates: start: 20220914, end: 20221005
  2. AMOXICILLIN [Concomitant]
     Active Substance: AMOXICILLIN
     Indication: Product used for unknown indication
     Dosage: 1 DF, TID
     Route: 065
     Dates: start: 20220715, end: 20220813
  3. BUPROPION [Concomitant]
     Active Substance: BUPROPION
     Indication: Product used for unknown indication
     Dosage: 1 DF, QD
     Route: 065
     Dates: start: 20220913, end: 20221005
  4. FLUOXETINE [Concomitant]
     Active Substance: FLUOXETINE HYDROCHLORIDE
     Indication: Persistent depressive disorder
     Dosage: 2 DF, QD
     Route: 065
     Dates: start: 20220819
  5. MOMETASONE [Concomitant]
     Active Substance: MOMETASONE
     Indication: Eustachian tube dysfunction
     Dosage: 2 DF, BID, TWO SPRAYS TO BE USED IN EACH NOSTRIL TWICE A DAY
     Route: 065
     Dates: start: 20220819
  6. ZOPICLONE [Concomitant]
     Active Substance: ZOPICLONE
     Indication: Product used for unknown indication
     Dosage: UNK, HALF OR ONE TO BE TAKEN AT NIGHT WHEN REQUIRED FOR VERY OCCASIONAL USE
     Route: 065
     Dates: start: 20220819, end: 20221001

REACTIONS (1)
  - Serotonin syndrome [Recovering/Resolving]

NARRATIVE: CASE EVENT DATE: 20221001
